FAERS Safety Report 7905764-8 (Version None)
Quarter: 2011Q4

REPORT INFORMATION
  Report Type: 
  Country: None (occurrence: None)
  Receive Date: 20111108
  Receipt Date: 20110817
  Transmission Date: 20120403
  Serious: Yes (Disabling)
  Sender: FDA-Public Use
  Company Number: CIO11009665

PATIENT
  Age: 42 Year
  Sex: Female
  Weight: 113.4 kg

DRUGS (2)
  1. LOSARTAN/HYDROCHLOORTHIAZIDE (HYDROCHLOROTHIAZIDE, LOSARTAN POTASSIUM) [Concomitant]
  2. SINEX VAPOSPRAY 12 HOUR DECONGESTANT ULTRA FINE MIST(CAMPHOR, EUCALYPT [Suspect]
     Indication: NASAL CONGESTION
     Dosage: 2 SPRAY, 2 /DAY, NASAL
     Route: 045
     Dates: start: 20110201

REACTIONS (2)
  - AGEUSIA [None]
  - ANOSMIA [None]
